FAERS Safety Report 20581363 (Version 2)
Quarter: 2022Q1

REPORT INFORMATION
  Report Type: Report from Study
  Country: CN (occurrence: None)
  Receive Date: 20220311
  Receipt Date: 20220331
  Transmission Date: 20220423
  Serious: Yes (Hospitalization)
  Sender: FDA-Public Use
  Company Number: CN-ROCHE-3044566

PATIENT
  Age: 45 Year
  Sex: Male
  Weight: 61.2 kg

DRUGS (15)
  1. RITUXIMAB [Suspect]
     Active Substance: RITUXIMAB
     Indication: Product used for unknown indication
     Dosage: DOSE LAST STUDY DRUG ADMIN PRIOR AE IS 623 MGDOSE LAST STUDY DRUG ADMIN PRIOR SAE IS 623 MG
     Route: 041
     Dates: start: 20211210
  2. GEMCITABINE [Suspect]
     Active Substance: GEMCITABINE
     Indication: Product used for unknown indication
     Dosage: START DATE OF MOST RECENT DOSE OF STUDY DRUG?PRIOR TO AE 15-FEB-2022, START DATE OF MOST RECENT DOSE
     Route: 042
     Dates: start: 20211211
  3. OXALIPLATIN [Suspect]
     Active Substance: OXALIPLATIN
     Indication: Product used for unknown indication
     Dosage: START DATE OF MOST RECENT DOSE OF STUDY DRUG?PRIOR TO AE 15-FEB-2022, START DATE OF MOST RECENT DOSE
     Route: 042
     Dates: start: 20211211
  4. DEXAMETHASONE [Concomitant]
     Active Substance: DEXAMETHASONE
     Route: 042
     Dates: start: 20220215, end: 20220215
  5. DIPHENHYDRAMINE [Concomitant]
     Active Substance: DIPHENHYDRAMINE
     Indication: Prophylaxis
     Route: 030
     Dates: start: 20220215, end: 20220215
  6. DIPHENHYDRAMINE [Concomitant]
     Active Substance: DIPHENHYDRAMINE
     Route: 030
     Dates: start: 20220215, end: 20220216
  7. ACETAMINOPHEN [Concomitant]
     Active Substance: ACETAMINOPHEN
     Route: 048
     Dates: start: 20220215, end: 20220215
  8. SODIUM LACTATE RINGER^S [Concomitant]
     Route: 042
     Dates: start: 20220215, end: 20220215
  9. SODIUM BICARBONATE [Concomitant]
     Active Substance: SODIUM BICARBONATE
     Route: 042
     Dates: start: 20220215, end: 20220215
  10. OMEPRAZOLE [Concomitant]
     Active Substance: OMEPRAZOLE
     Route: 042
     Dates: start: 20220215, end: 20220215
  11. METOCLOPRAMIDE [Concomitant]
     Active Substance: METOCLOPRAMIDE
     Route: 030
     Dates: start: 20220215, end: 20220216
  12. METHYLPREDNISOLONE [Concomitant]
     Active Substance: METHYLPREDNISOLONE
     Route: 042
     Dates: start: 20220215, end: 20220216
  13. TROPISETRON [Concomitant]
     Active Substance: TROPISETRON
     Route: 042
     Dates: start: 20220215, end: 20220216
  14. APREPITANT [Concomitant]
     Active Substance: APREPITANT
     Dosage: 1 CAPSULE
     Route: 048
     Dates: start: 20220215, end: 20220216
  15. MECAPEGFILGRASTIM [Concomitant]
     Active Substance: MECAPEGFILGRASTIM
     Route: 058
     Dates: start: 20220215, end: 20220215

REACTIONS (1)
  - Malaise [Not Recovered/Not Resolved]

NARRATIVE: CASE EVENT DATE: 20220303
